FAERS Safety Report 10256195 (Version 1)
Quarter: 2014Q2

REPORT INFORMATION
  Report Type: Spontaneous
  Country: JP (occurrence: JP)
  Receive Date: 20140624
  Receipt Date: 20140624
  Transmission Date: 20141212
  Serious: Yes (Hospitalization, Other)
  Sender: FDA-Public Use
  Company Number: JP-WATSON-2014-14038

PATIENT
  Age: 64 Year
  Sex: Female

DRUGS (10)
  1. CYCLOSPORINE (UNKNOWN) [Suspect]
     Indication: SYSTEMIC LUPUS ERYTHEMATOSUS
     Dosage: UNKNOWN
     Route: 065
  2. CYCLOSPORINE (UNKNOWN) [Interacting]
     Indication: PROTEIN-LOSING GASTROENTEROPATHY
  3. CIBENZOLINE [Interacting]
     Indication: LEFT VENTRICULAR END-DIASTOLIC PRESSURE INCREASED
     Dosage: UNKNOWN
     Route: 065
  4. PREDNISOLONE [Concomitant]
     Indication: SYSTEMIC LUPUS ERYTHEMATOSUS
     Dosage: UNKNOWN
     Route: 065
  5. PREDNISOLONE [Concomitant]
     Indication: PROTEIN-LOSING GASTROENTEROPATHY
  6. ATENOLOL [Concomitant]
     Indication: LEFT VENTRICULAR END-DIASTOLIC PRESSURE INCREASED
     Dosage: UNKNOWN
     Route: 065
  7. MIZORIBINE [Concomitant]
     Indication: PRODUCT USED FOR UNKNOWN INDICATION
     Dosage: UNKNOWN
     Route: 065
  8. PRAVASTATIN [Concomitant]
     Indication: PRODUCT USED FOR UNKNOWN INDICATION
     Dosage: UNKNOWN
     Route: 065
  9. EZETIMIBE [Concomitant]
     Indication: PRODUCT USED FOR UNKNOWN INDICATION
     Dosage: UNKNOWN
     Route: 065
  10. LANSOPRAZOLE [Concomitant]
     Indication: PRODUCT USED FOR UNKNOWN INDICATION
     Dosage: UNKNOWN
     Route: 065

REACTIONS (13)
  - Ventricular tachycardia [Recovered/Resolved]
  - Device pacing issue [Recovered/Resolved]
  - Cardioactive drug level increased [Recovered/Resolved]
  - Drug interaction [Recovered/Resolved]
  - Electrocardiogram ST-T segment abnormal [None]
  - Cardiac murmur [None]
  - Syncope [None]
  - Chest discomfort [None]
  - Haemodynamic instability [None]
  - Hypertrophic cardiomyopathy [None]
  - Condition aggravated [None]
  - Ventricular dyssynchrony [None]
  - Hypoglycaemia [None]
